FAERS Safety Report 15626299 (Version 1)
Quarter: 2018Q4

REPORT INFORMATION
  Report Type: Spontaneous
  Country: US (occurrence: US)
  Receive Date: 20181116
  Receipt Date: 20181116
  Transmission Date: 20190205
  Serious: Yes (Other)
  Sender: FDA-Public Use
  Company Number: None

PATIENT
  Age: 65 Year
  Sex: Female
  Weight: 45.13 kg

DRUGS (7)
  1. TEMOZOLOMIDE. [Suspect]
     Active Substance: TEMOZOLOMIDE
     Indication: LUNG NEOPLASM MALIGNANT
     Route: 048
     Dates: start: 20181012
  2. LORAZEPAM. [Concomitant]
     Active Substance: LORAZEPAM
  3. MORPHINE SULFATE ER [Concomitant]
     Active Substance: MORPHINE SULFATE
  4. BACTRIM DS [Concomitant]
     Active Substance: SULFAMETHOXAZOLE\TRIMETHOPRIM
  5. LEVOTHYROXINE. [Concomitant]
     Active Substance: LEVOTHYROXINE
  6. SENOKOT [Concomitant]
     Active Substance: SENNOSIDES
  7. CITALOPRAM [Concomitant]
     Active Substance: CITALOPRAM HYDROBROMIDE

REACTIONS (1)
  - Nausea [None]

NARRATIVE: CASE EVENT DATE: 20181116
